FAERS Safety Report 17874746 (Version 2)
Quarter: 2020Q4

REPORT INFORMATION
  Report Type: Report from Study
  Country: JP (occurrence: JP)
  Receive Date: 20200609
  Receipt Date: 20201104
  Transmission Date: 20210113
  Serious: Yes (Hospitalization, Other)
  Sender: FDA-Public Use
  Company Number: NVSJ2020JP005583

PATIENT
  Age: 8 Month
  Sex: Female
  Weight: 1.51 kg

DRUGS (37)
  1. ASVERIN [Concomitant]
     Indication: PRODUCT USED FOR UNKNOWN INDICATION
     Dosage: 2 ML
     Route: 048
     Dates: start: 20190508, end: 20190514
  2. ILARIS [Suspect]
     Active Substance: CANAKINUMAB
     Dosage: 30 MG
     Route: 058
     Dates: start: 20190724
  3. ILARIS [Suspect]
     Active Substance: CANAKINUMAB
     Dosage: 45 MG
     Route: 058
     Dates: start: 20200115
  4. ILARIS [Suspect]
     Active Substance: CANAKINUMAB
     Dosage: 45 MG
     Route: 058
     Dates: start: 20200318
  5. PRANLUKAST [Concomitant]
     Active Substance: PRANLUKAST
     Indication: PRODUCT USED FOR UNKNOWN INDICATION
     Dosage: 30 MG
     Route: 048
     Dates: start: 20190510
  6. CARBOCISTEINE [Concomitant]
     Active Substance: CARBOCYSTEINE
     Indication: PRODUCT USED FOR UNKNOWN INDICATION
     Dosage: 120 MG
     Route: 048
     Dates: start: 20190409, end: 20190423
  7. ILARIS [Suspect]
     Active Substance: CANAKINUMAB
     Dosage: 7.2 MG/KG
     Route: 058
  8. SOLU-CORTEF [Concomitant]
     Active Substance: HYDROCORTISONE SODIUM SUCCINATE
     Dosage: 120 MG
     Route: 065
     Dates: start: 20190923, end: 20190926
  9. ILARIS [Suspect]
     Active Substance: CANAKINUMAB
     Dosage: 4.2 MG/KG
     Route: 058
  10. ILARIS [Suspect]
     Active Substance: CANAKINUMAB
     Dosage: 5.9 MG/KG
     Route: 058
  11. ILARIS [Suspect]
     Active Substance: CANAKINUMAB
     Dosage: 7-8 MG/KG
     Route: 058
  12. ILARIS [Suspect]
     Active Substance: CANAKINUMAB
     Dosage: 30 MG
     Route: 058
     Dates: start: 20190424
  13. ILARIS [Suspect]
     Active Substance: CANAKINUMAB
     Dosage: 60 MG
     Route: 058
     Dates: start: 20200819
  14. SOLU-CORTEF [Concomitant]
     Active Substance: HYDROCORTISONE SODIUM SUCCINATE
     Dosage: 120 MG
     Route: 065
     Dates: start: 20200226, end: 20200303
  15. ILARIS [Suspect]
     Active Substance: CANAKINUMAB
     Dosage: 7-8 MG/KG, 4W
     Route: 065
  16. ILARIS [Suspect]
     Active Substance: CANAKINUMAB
     Dosage: 30 MG
     Route: 058
     Dates: start: 20190911
  17. ILARIS [Suspect]
     Active Substance: CANAKINUMAB
     Dosage: 60 MG
     Route: 058
     Dates: start: 20200415
  18. ILARIS [Suspect]
     Active Substance: CANAKINUMAB
     Dosage: 60 MG
     Route: 058
     Dates: start: 20200708
  19. INCREMIN [Concomitant]
     Indication: PRODUCT USED FOR UNKNOWN INDICATION
     Dosage: 3 UNK
     Route: 048
     Dates: start: 20190320, end: 20190331
  20. MIYA-BM [Concomitant]
     Active Substance: CLOSTRIDIUM BUTYRICUM SPORES STRAIN M-55
     Indication: PRODUCT USED FOR UNKNOWN INDICATION
     Dosage: 0.5 G
     Route: 048
     Dates: start: 20190607
  21. PULMICORT TURBUHALER [Concomitant]
     Active Substance: BUDESONIDE
     Indication: PRODUCT USED FOR UNKNOWN INDICATION
     Dosage: 1 DF
     Route: 055
     Dates: start: 20190520, end: 20200819
  22. CARBOCISTEINE [Concomitant]
     Active Substance: CARBOCYSTEINE
     Indication: PRODUCT USED FOR UNKNOWN INDICATION
     Dosage: UNK
     Route: 048
     Dates: start: 20190327, end: 20190409
  23. SOLU-CORTEF [Concomitant]
     Active Substance: HYDROCORTISONE SODIUM SUCCINATE
     Indication: PRODUCT USED FOR UNKNOWN INDICATION
     Dosage: 60 MG
     Route: 065
     Dates: start: 20190510, end: 20190513
  24. SOLU-CORTEF [Concomitant]
     Active Substance: HYDROCORTISONE SODIUM SUCCINATE
     Dosage: 120 MG
     Route: 065
     Dates: start: 20191019, end: 20191024
  25. ILARIS [Suspect]
     Active Substance: CANAKINUMAB
     Dosage: 7.2 MG/KG
     Route: 058
  26. ILARIS [Suspect]
     Active Substance: CANAKINUMAB
     Dosage: 30 MG
     Route: 058
     Dates: start: 20190607
  27. ILARIS [Suspect]
     Active Substance: CANAKINUMAB
     Dosage: 45 MG
     Route: 058
     Dates: start: 20191028
  28. ILARIS [Suspect]
     Active Substance: CANAKINUMAB
     Dosage: 60 MG
     Route: 058
     Dates: start: 20200920
  29. CLARITH [Concomitant]
     Active Substance: CLARITHROMYCIN
     Indication: PRODUCT USED FOR UNKNOWN INDICATION
     Dosage: 60 UNK
     Route: 048
     Dates: start: 20190508, end: 20190514
  30. SULBACILLIN [Concomitant]
     Active Substance: AMPICILLIN SODIUM\SULBACTAM SODIUM
     Indication: PRODUCT USED FOR UNKNOWN INDICATION
     Dosage: 0.9 G
     Route: 065
     Dates: start: 20190923, end: 20190928
  31. ILARIS [Suspect]
     Active Substance: CANAKINUMAB
     Indication: CHRONIC INFANTILE NEUROLOGICAL CUTANEOUS AND ARTICULAR SYNDROME
     Dosage: 2.5 MG/KG
     Route: 058
     Dates: start: 20181004
  32. ILARIS [Suspect]
     Active Substance: CANAKINUMAB
     Dosage: 60 MG
     Route: 058
     Dates: start: 20200527
  33. ASVERIN [Concomitant]
     Indication: PRODUCT USED FOR UNKNOWN INDICATION
     Dosage: 0.1 G
     Route: 048
     Dates: start: 20190515, end: 20200618
  34. ILARIS [Suspect]
     Active Substance: CANAKINUMAB
     Dosage: 45 MG
     Route: 058
     Dates: start: 20191204
  35. CARBOCISTEINE [Concomitant]
     Active Substance: CARBOCYSTEINE
     Dosage: 2 ML
     Route: 048
     Dates: start: 20190508, end: 20190514
  36. CARBOCISTEINE [Concomitant]
     Active Substance: CARBOCYSTEINE
     Dosage: 0.3 G
     Route: 048
     Dates: start: 20190515, end: 20200618
  37. CLARITH [Concomitant]
     Active Substance: CLARITHROMYCIN
     Dosage: 70 MG
     Route: 048
     Dates: start: 20190517, end: 20190603

REACTIONS (14)
  - Upper respiratory tract inflammation [Unknown]
  - Motor developmental delay [Unknown]
  - Gastroenteritis [Recovered/Resolved]
  - C-reactive protein increased [Unknown]
  - Arthropathy [Unknown]
  - Pneumonia [Recovered/Resolved]
  - Asthma [Recovered/Resolved]
  - Bronchiolitis [Recovered/Resolved]
  - Increased upper airway secretion [Unknown]
  - Rash [Unknown]
  - Bronchitis [Recovered/Resolved]
  - Asthma [Recovered/Resolved]
  - Otitis media [Unknown]
  - Upper respiratory tract inflammation [Recovered/Resolved]

NARRATIVE: CASE EVENT DATE: 20190409
